FAERS Safety Report 4668134-4 (Version None)
Quarter: 2005Q2

REPORT INFORMATION
  Report Type: 
  Country: None (occurrence: None)
  Receive Date: 20050521
  Receipt Date: 20041221
  Transmission Date: 20051028
  Serious: Yes (Other)
  Sender: FDA-Public Use
  Company Number: PHEH2004US13530

PATIENT
  Age: 55 Year
  Sex: Female

DRUGS (14)
  1. XELODA [Concomitant]
     Dates: start: 20041109
  2. NAVELBINE [Concomitant]
     Dates: start: 20040113, end: 20041102
  3. HERCEPTIN [Concomitant]
     Dates: start: 20040401
  4. ARANESP [Concomitant]
  5. PROCRIT                            /00909301/ [Concomitant]
  6. DYAZIDE [Concomitant]
  7. PEPCID AC [Concomitant]
  8. SYNTHROID [Concomitant]
     Dosage: 75 UG, QD
  9. METOPROLOL TARTRATE TABLETS USP (NGX) [Concomitant]
     Dosage: 25 MG, BID
  10. CORTEF                                  /CAN/ [Concomitant]
     Dosage: 10 MG, BID
  11. COUMADIN [Concomitant]
     Dosage: 1 MG, QD
  12. LISINOPRIL TABLETS (NGX) [Concomitant]
     Dosage: 5 MG, QD
  13. NIFEDIPINE [Concomitant]
     Dosage: 30 MG, QD
  14. ZOMETA [Suspect]
     Indication: BREAST CANCER METASTATIC
     Dosage: 4 MG, UNK
     Dates: start: 20040217, end: 20041130

REACTIONS (3)
  - OSTEONECROSIS [None]
  - PAIN [None]
  - RASH [None]
